FAERS Safety Report 4498407-X (Version None)
Quarter: 2004Q4

REPORT INFORMATION
  Report Type: 
  Country: None (occurrence: None)
  Receive Date: 20041105
  Receipt Date: 20041022
  Transmission Date: 20050328
  Serious: Yes (Hospitalization)
  Sender: FDA-Public Use
  Company Number: 2004AP05473

PATIENT
  Age: 73 Year
  Sex: Male
  Weight: 38 kg

DRUGS (2)
  1. OMEPRAL [Suspect]
     Indication: DUODENAL ULCER
     Dates: start: 20041018
  2. ULCERLMIN [Concomitant]

REACTIONS (6)
  - ADULT T-CELL LYMPHOMA/LEUKAEMIA [None]
  - DRUG ERUPTION [None]
  - HEPATIC FAILURE [None]
  - PLATELET COUNT DECREASED [None]
  - PYREXIA [None]
  - RASH GENERALISED [None]
